FAERS Safety Report 24554387 (Version 1)
Quarter: 2024Q4

REPORT INFORMATION
  Report Type: Spontaneous
  Country: IE (occurrence: IE)
  Receive Date: 20241028
  Receipt Date: 20241028
  Transmission Date: 20250115
  Serious: Yes (Other)
  Sender: TEVA
  Company Number: None

PATIENT
  Age: 4 Year
  Sex: Male
  Weight: 21 kg

DRUGS (2)
  1. MONTELUKAST [Suspect]
     Active Substance: MONTELUKAST
     Indication: Asthma prophylaxis
     Dosage: MONTELUKAST (G)
     Route: 048
     Dates: start: 20240914, end: 20240918
  2. BECLAZONE [Concomitant]
     Indication: Asthma
     Dosage: CFC-FREE INHALER
     Route: 048
     Dates: start: 20240318

REACTIONS (4)
  - Abnormal sleep-related event [Recovered/Resolved]
  - Nightmare [Recovered/Resolved]
  - Sleep terror [Recovered/Resolved]
  - Movement disorder [Recovered/Resolved]

NARRATIVE: CASE EVENT DATE: 20240918
